FAERS Safety Report 6522021-5 (Version None)
Quarter: 2009Q4

REPORT INFORMATION
  Report Type: 
  Country: None (occurrence: None)
  Receive Date: 20091230
  Receipt Date: 20091222
  Transmission Date: 20100525
  Serious: Yes (Hospitalization, Other)
  Sender: FDA-Public Use
  Company Number: DE-ROCHE-653781

PATIENT
  Sex: Male
  Weight: 90.8 kg

DRUGS (2)
  1. BEVACIZUMAB [Suspect]
     Dosage: ROUTE AS PER PROTOCOL, LAST THERAPY ON 26 AUGUST 2009
     Route: 042
     Dates: start: 20090822, end: 20090826
  2. RAD001 [Suspect]
     Dosage: FORM AND ROUTE AS PER PROTOCOL
     Route: 048
     Dates: start: 20090822, end: 20090830

REACTIONS (2)
  - ENTEROVESICAL FISTULA [None]
  - UROSEPSIS [None]
